FAERS Safety Report 7077181-7 (Version None)
Quarter: 2010Q4

REPORT INFORMATION
  Report Type: 
  Country: None (occurrence: None)
  Receive Date: 20101101
  Receipt Date: 20101028
  Transmission Date: 20110411
  Serious: Yes (Death)
  Sender: FDA-Public Use
  Company Number: B0681461A

PATIENT
  Age: 40 Year
  Sex: Male

DRUGS (10)
  1. MARAVIROC [Suspect]
     Indication: HIV INFECTION
     Dosage: 150MG TWICE PER DAY
     Route: 048
     Dates: start: 20060214, end: 20101006
  2. TENOFOVIR DISOPROXIL FUMARATE [Concomitant]
     Dosage: 300MG PER DAY
     Route: 048
     Dates: start: 20060214
  3. KALETRA [Concomitant]
     Route: 048
     Dates: start: 20060614
  4. SQV [Concomitant]
     Dosage: 100MG TWICE PER DAY
     Route: 048
     Dates: start: 20060614
  5. EPZICOM [Concomitant]
     Route: 048
     Dates: start: 20060614
  6. M.V.I. [Concomitant]
     Dosage: 1TAB PER DAY
     Route: 048
     Dates: start: 20090101
  7. OXANDROLONE [Concomitant]
     Dosage: 10MG PER DAY
     Route: 048
     Dates: start: 20070801
  8. DRONABINOL [Concomitant]
     Dosage: 5MG PER DAY
     Route: 048
     Dates: start: 20070403
  9. VITAMIN B-12 [Concomitant]
     Route: 030
     Dates: start: 20071001
  10. TEMAZEPAM [Concomitant]
     Dosage: 30MG PER DAY
     Route: 048
     Dates: start: 20071212

REACTIONS (1)
  - MENINGIOMA [None]
